FAERS Safety Report 17291737 (Version 1)
Quarter: 2020Q1

REPORT INFORMATION
  Report Type: Report from Study
  Country: GB (occurrence: GB)
  Receive Date: 20200121
  Receipt Date: 20200121
  Transmission Date: 20200409
  Serious: Yes (Other)
  Sender: FDA-Public Use
  Company Number: GB-BAYER-2020-005060

PATIENT
  Age: 32 Year
  Sex: Female
  Weight: 60 kg

DRUGS (1)
  1. MIRENA [Suspect]
     Active Substance: LEVONORGESTREL
     Indication: CONTRACEPTION
     Dosage: 20 MCG/24HR, CONT
     Route: 015
     Dates: start: 20161216, end: 20180613

REACTIONS (4)
  - Coital bleeding [Recovered/Resolved]
  - Embedded device [Recovered/Resolved]
  - Dyspareunia [Recovered/Resolved]
  - Device use issue [None]

NARRATIVE: CASE EVENT DATE: 20180306
